FAERS Safety Report 15785657 (Version 1)
Quarter: 2018Q4

REPORT INFORMATION
  Report Type: Spontaneous
  Country: US (occurrence: US)
  Receive Date: 20181228
  Receipt Date: 20181228
  Transmission Date: 20190205
  Serious: No
  Sender: FDA-Public Use
  Company Number: None

PATIENT

DRUGS (2)
  1. MAGNESIUM SULFATE IN D5W [Suspect]
     Active Substance: MAGNESIUM SULFATE
     Dosage: ?          OTHER ROUTE:IV BAG?
  2. HEPARIN SOD. SOLUTION 25,000 UNITS/500 ML HEPARIN SODIUM [Suspect]
     Active Substance: HEPARIN SODIUM
     Dosage: ?          OTHER ROUTE:IV BAG?

REACTIONS (2)
  - Intercepted product preparation error [None]
  - Product label confusion [None]
